FAERS Safety Report 8057174-3 (Version None)
Quarter: 2012Q1

REPORT INFORMATION
  Report Type: 
  Country: None (occurrence: None)
  Receive Date: 20120119
  Receipt Date: 20120112
  Transmission Date: 20120608
  Serious: Yes (Hospitalization, Other)
  Sender: FDA-Public Use
  Company Number: US-US-EMD SERONO, INC.-230760J10USA

PATIENT
  Sex: Female
  Weight: 51 kg

DRUGS (10)
  1. DETROL LA [Concomitant]
     Indication: NEUROGENIC BLADDER
  2. STEROIDS [Suspect]
     Indication: MULTIPLE SCLEROSIS
  3. FOSAMAX [Concomitant]
     Indication: OSTEOPOROSIS
  4. NEURONTIN [Concomitant]
     Indication: PAIN
  5. UNSPECIFIED MEDICATION [Concomitant]
     Indication: ANAEMIA
  6. VASOTEC [Concomitant]
     Indication: HYPERTENSION
  7. VERAPAMIL [Concomitant]
     Indication: MIGRAINE
  8. REBIF [Suspect]
     Indication: MULTIPLE SCLEROSIS
     Route: 058
     Dates: start: 20070129
  9. ZOLOFT [Concomitant]
     Indication: DEPRESSION
  10. DITROPAN [Concomitant]
     Indication: NEUROGENIC BLADDER

REACTIONS (3)
  - PELVIC FRACTURE [None]
  - FALL [None]
  - OSTEONECROSIS [None]
